FAERS Safety Report 24216831 (Version 1)
Quarter: 2024Q3

REPORT INFORMATION
  Report Type: Report from Study
  Country: CA (occurrence: CA)
  Receive Date: 20240816
  Receipt Date: 20240816
  Transmission Date: 20241017
  Serious: Yes (Other)
  Sender: DR REDDYS
  Company Number: CA-drreddys-CLI/CAN/23/0160936

PATIENT
  Age: 67 Year
  Sex: Female

DRUGS (1)
  1. ZOLEDRONIC ACID [Suspect]
     Active Substance: ZOLEDRONIC ACID
     Indication: Osteoporosis
     Dosage: 5MG/100ML
     Dates: start: 20180612

REACTIONS (4)
  - Cholelithiasis [Unknown]
  - Neoplasm [Unknown]
  - Cough [Unknown]
  - Rhinorrhoea [Unknown]
